FAERS Safety Report 16195817 (Version 1)
Quarter: 2019Q2

REPORT INFORMATION
  Report Type: Spontaneous
  Country: IT (occurrence: IT)
  Receive Date: 20190415
  Receipt Date: 20190415
  Transmission Date: 20190711
  Serious: Yes (Other)
  Sender: FDA-Public Use
  Company Number: IT-ROCHE-2301440

PATIENT
  Age: 53 Year
  Sex: Male

DRUGS (1)
  1. MYCOPHENOLATE MOFETIL. [Suspect]
     Active Substance: MYCOPHENOLATE MOFETIL
     Indication: MULTIFOCAL MOTOR NEUROPATHY
     Dosage: 1 G, TWICE A DAY
     Route: 065
     Dates: end: 2013

REACTIONS (4)
  - Multifocal motor neuropathy [Unknown]
  - Intentional product use issue [Unknown]
  - Muscular weakness [Unknown]
  - Transitional cell carcinoma [Unknown]
